FAERS Safety Report 7480367-0 (Version None)
Quarter: 2011Q2

REPORT INFORMATION
  Report Type: 
  Country: None (occurrence: None)
  Receive Date: 20110504
  Receipt Date: 20110320
  Transmission Date: 20111010
  Serious: Yes (Death, Hospitalization, Other)
  Sender: FDA-Public Use
  Company Number: ALA_00626_2010

PATIENT
  Sex: Female
  Weight: 72 kg

DRUGS (18)
  1. PROMETHAZINE [Concomitant]
  2. LISINOPRIL [Concomitant]
  3. ASPIRIN [Concomitant]
  4. QUININE SULFATE [Concomitant]
  5. BENADRYL [Concomitant]
  6. NORVASC [Concomitant]
  7. PAXIL [Concomitant]
  8. RENAGEL /01459901/ [Concomitant]
  9. METOCLOPRAMIDE [Suspect]
     Indication: VOMITING
     Dosage: (10 MG BID ORAL), (5 MG BID ORAL)
     Route: 048
     Dates: start: 20041101, end: 20060801
  10. METOCLOPRAMIDE [Suspect]
     Indication: NAUSEA
     Dosage: (10 MG BID ORAL), (5 MG BID ORAL)
     Route: 048
     Dates: start: 20041101, end: 20060801
  11. METOCLOPRAMIDE [Suspect]
     Indication: VOMITING
     Dosage: (10 MG BID ORAL), (5 MG BID ORAL)
     Route: 048
     Dates: start: 20060622
  12. METOCLOPRAMIDE [Suspect]
     Indication: NAUSEA
     Dosage: (10 MG BID ORAL), (5 MG BID ORAL)
     Route: 048
     Dates: start: 20060622
  13. HYDROCODONE BITARTRATE AND ACETAMINOPHEN [Concomitant]
  14. AMITRIPTYLINE HCL [Concomitant]
  15. VITAMIN B COMPLEX CAP [Concomitant]
  16. TRAZODONE HCL [Concomitant]
  17. LIPITOR [Concomitant]
  18. DIATX [Concomitant]

REACTIONS (40)
  - RESTLESSNESS [None]
  - CONFUSIONAL STATE [None]
  - AMNESIA [None]
  - DYSPHAGIA [None]
  - GAIT DISTURBANCE [None]
  - ANXIETY [None]
  - CEREBRAL INFARCTION [None]
  - MYCOBACTERIAL INFECTION [None]
  - TARDIVE DYSKINESIA [None]
  - COORDINATION ABNORMAL [None]
  - NIGHT SWEATS [None]
  - COGNITIVE DISORDER [None]
  - MOVEMENT DISORDER [None]
  - SNORING [None]
  - MYALGIA [None]
  - STATUS EPILEPTICUS [None]
  - INSOMNIA [None]
  - MUSCLE ATROPHY [None]
  - CONTUSION [None]
  - HEADACHE [None]
  - BALANCE DISORDER [None]
  - MUSCLE TWITCHING [None]
  - ECONOMIC PROBLEM [None]
  - HYPERKERATOSIS [None]
  - LOSS OF CONSCIOUSNESS [None]
  - FATIGUE [None]
  - RESPIRATORY FAILURE [None]
  - DEPRESSION [None]
  - ASTHENIA [None]
  - SOMNOLENCE [None]
  - SLEEP APNOEA SYNDROME [None]
  - ERECTILE DYSFUNCTION [None]
  - MACROCYTOSIS [None]
  - PARTIAL SEIZURES [None]
  - EXTRAPYRAMIDAL DISORDER [None]
  - AKATHISIA [None]
  - EMOTIONAL DISORDER [None]
  - DRY SKIN [None]
  - CONDITION AGGRAVATED [None]
  - SEPSIS [None]
